FAERS Safety Report 9219355 (Version 1)
Quarter: 2013Q1

REPORT INFORMATION
  Report Type: Spontaneous
  Country: US (occurrence: US)
  Receive Date: 20120828
  Receipt Date: 20120828
  Transmission Date: 20140127
  Serious: Yes (Hospitalization)
  Sender: FDA-Public Use
  Company Number: 2010BH022631

PATIENT
  Age: 12 Year
  Sex: Female
  Weight: 32 kg

DRUGS (15)
  1. KIOVIG LIQUID_10%_SOLUTION FOR INFUSION_VIAL, GLASS (IMMUNOGLOBULIN, NORMAL HUMAN) (SOLUTION FOR INFUSION) [Suspect]
     Indication: HEART TRANSPLANT
     Route: 042
     Dates: start: 201006
  2. KIOVIG LIQUID_10%_SOLUTION FOR INFUSION_VIAL, GLASS (IMMUNOGLOBULIN, NORMAL HUMAN) (SOLUTION FOR INFUSION) [Suspect]
     Indication: SECONDARY IMMUNODEFICIENCY
     Route: 042
     Dates: start: 201006
  3. DIPHENHYDRAMINE (DIPHENHYDRAMINE) [Concomitant]
  4. TYLENOL [Concomitant]
  5. PROGRAF (TACROLIMUS) [Concomitant]
  6. PREDNISONE (PREDNISONE) [Concomitant]
  7. MYCOPHENOLATE MOFETIL (MYCOPHENOLATE MOFETIL) [Concomitant]
  8. MAGNESIUM OXIDE (MAGNESIUM OXIDE) [Concomitant]
  9. ZANTAC (RANITIDINE HYDROCHLORIDE) [Concomitant]
  10. SPIRONOLACTONE (SPIRONOLACTONE) [Concomitant]
  11. ASA (ACETYLSALICYLIC ACID) [Concomitant]
  12. ALBUTEROL [Concomitant]
  13. BUMETANIDE (BUMETANIDE) [Concomitant]
  14. GANCICLOVIR (GANCICLOVIR) [Concomitant]
  15. AMIODARONE (AMIODARONE) [Concomitant]

REACTIONS (3)
  - Vomiting [None]
  - Nausea [None]
  - Chills [None]
